FAERS Safety Report 6463345-X (Version None)
Quarter: 2009Q4

REPORT INFORMATION
  Report Type: 
  Country: None (occurrence: None)
  Receive Date: 20091130
  Receipt Date: 20090805
  Transmission Date: 20100525
  Serious: Yes (Other)
  Sender: FDA-Public Use
  Company Number: US-AMGEN-QUU358922

PATIENT
  Sex: Female

DRUGS (1)
  1. ENBREL [Suspect]
     Indication: ANKYLOSING SPONDYLITIS
     Route: 058
     Dates: start: 20081201

REACTIONS (6)
  - ALOPECIA [None]
  - ANKYLOSING SPONDYLITIS [None]
  - BLOOD CORTISOL DECREASED [None]
  - CATHETER SITE PAIN [None]
  - FATIGUE [None]
  - TOOTH ABSCESS [None]
